FAERS Safety Report 10058200 (Version 1)
Quarter: 2014Q2

REPORT INFORMATION
  Report Type: Spontaneous
  Country: US (occurrence: US)
  Receive Date: 20140404
  Receipt Date: 20140404
  Transmission Date: 20141212
  Serious: No
  Sender: FDA-Public Use
  Company Number: US-TEVA-473271USA

PATIENT
  Sex: Female

DRUGS (1)
  1. CLARAVIS [Suspect]
     Dates: start: 20140225

REACTIONS (5)
  - Swelling face [Unknown]
  - Lip swelling [Unknown]
  - Acne [Unknown]
  - Headache [Unknown]
  - Overdose [Unknown]
